FAERS Safety Report 13051705 (Version 1)
Quarter: 2016Q4

REPORT INFORMATION
  Report Type: Spontaneous
  Country: GB (occurrence: GB)
  Receive Date: 20161221
  Receipt Date: 20161221
  Transmission Date: 20170207
  Serious: No
  Sender: FDA-Public Use
  Company Number: GB-FRESENIUS KABI-FK201609998

PATIENT
  Age: 81 Year
  Sex: Male

DRUGS (5)
  1. ADDITRACE [Concomitant]
     Active Substance: MINERALS
  2. VITALIPID N ADULT [Concomitant]
     Active Substance: ERGOCALCIFEROL\PHYTONADIONE\RETINOL\TOCOPHEROL
  3. KABIVEN [Suspect]
     Active Substance: AMINO ACIDS\ANHYDROUS DEXTROSE\CALCIUM CHLORIDE\MAGNESIUM SULFATE HEPTAHYDRATE\POTASSIUM CHLORIDE\SODIUM ACETATE\SODIUM GLYCEROPHOSPHATE ANHYDROUS\SOYBEAN OIL
     Indication: PARENTERAL NUTRITION
     Route: 041
     Dates: start: 20161209
  4. SOLUVITO [Concomitant]
  5. ELECTROLYTES [Concomitant]
     Active Substance: ELECTROLYTES NOS

REACTIONS (2)
  - Swollen tongue [Unknown]
  - Anaphylactic reaction [Unknown]

NARRATIVE: CASE EVENT DATE: 20161209
